FAERS Safety Report 9645655 (Version 1)
Quarter: 2013Q4

REPORT INFORMATION
  Report Type: Spontaneous
  Country: US (occurrence: None)
  Receive Date: 20131024
  Receipt Date: 20131024
  Transmission Date: 20140711
  Serious: Yes (Hospitalization)
  Sender: FDA-Public Use
  Company Number: None

PATIENT
  Sex: Male
  Weight: 104.33 kg

DRUGS (1)
  1. PRADAXA [Suspect]
     Dates: start: 20130926, end: 20130927

REACTIONS (3)
  - Back pain [None]
  - Flank pain [None]
  - Pain in extremity [None]
